FAERS Safety Report 8327507-9 (Version None)
Quarter: 2012Q2

REPORT INFORMATION
  Report Type: 
  Country: None (occurrence: None)
  Receive Date: 20120502
  Receipt Date: 20120423
  Transmission Date: 20120825
  Serious: Yes (Hospitalization)
  Sender: FDA-Public Use
  Company Number: US-BAYER-2012-023589

PATIENT
  Age: 30 Year
  Sex: Female

DRUGS (2)
  1. CIPROFLOXACIN [Concomitant]
     Route: 048
  2. YAZ [Suspect]
     Dosage: UNK
     Route: 048
     Dates: start: 20090901, end: 20091001

REACTIONS (7)
  - INJURY [None]
  - PAIN [None]
  - ANXIETY [None]
  - PORTAL VEIN THROMBOSIS [None]
  - ABDOMINAL PAIN [None]
  - EMOTIONAL DISTRESS [None]
  - GENERAL PHYSICAL HEALTH DETERIORATION [None]
